FAERS Safety Report 26004422 (Version 1)
Quarter: 2025Q4

REPORT INFORMATION
  Report Type: Report from Study
  Country: CA (occurrence: CA)
  Receive Date: 20251106
  Receipt Date: 20251106
  Transmission Date: 20260117
  Serious: Yes (Hospitalization)
  Sender: AMGEN
  Company Number: CA-AMGEN-CANSL2023005482

PATIENT
  Age: 50 Year
  Sex: Male

DRUGS (3)
  1. AVSOLA [Suspect]
     Active Substance: INFLIXIMAB-AXXQ
     Indication: Psoriasis
     Dosage: 450 MILLIGRAM, Q6MO
     Route: 065
     Dates: start: 20220126
  2. AVSOLA [Suspect]
     Active Substance: INFLIXIMAB-AXXQ
     Indication: Psoriasis
     Dosage: 450 MILLIGRAM, Q6WK
     Route: 065
     Dates: start: 20220309
  3. AVSOLA [Suspect]
     Active Substance: INFLIXIMAB-AXXQ
     Dosage: 450 MILLIGRAM, Q6WK
     Route: 065

REACTIONS (3)
  - Palpitations [Recovered/Resolved]
  - Arthritis [Unknown]
  - Off label use [Unknown]

NARRATIVE: CASE EVENT DATE: 20220309
